FAERS Safety Report 7222661-4 (Version None)
Quarter: 2011Q1

REPORT INFORMATION
  Report Type: 
  Country: None (occurrence: None)
  Receive Date: 20110106
  Receipt Date: 20110106
  Transmission Date: 20110831
  Serious: No
  Sender: FDA-Public Use
  Company Number: None

PATIENT
  Sex: Female
  Weight: 88.4514 kg

DRUGS (1)
  1. SYNTHROID [Suspect]
     Indication: HYPOTHYROIDISM
     Dosage: 1 TAB, AM, DAILY

REACTIONS (7)
  - ABDOMINAL DISTENSION [None]
  - DYSPHAGIA [None]
  - HEADACHE [None]
  - DIZZINESS [None]
  - PAIN [None]
  - FLATULENCE [None]
  - PHARYNGEAL OEDEMA [None]
